FAERS Safety Report 4844372-2 (Version None)
Quarter: 2005Q4

REPORT INFORMATION
  Report Type: 
  Country: None (occurrence: None)
  Receive Date: 20051202
  Receipt Date: 20051114
  Transmission Date: 20060501
  Serious: Yes (Hospitalization, Other)
  Sender: FDA-Public Use
  Company Number: US-MERCK-0511USA02255

PATIENT
  Sex: Female

DRUGS (5)
  1. VIOXX [Suspect]
     Indication: ARTHRITIS
     Route: 048
     Dates: start: 20000101, end: 20040101
  2. VIOXX [Suspect]
     Route: 048
     Dates: start: 20000101, end: 20040101
  3. VIOXX [Suspect]
     Route: 048
     Dates: start: 20000101, end: 20040101
  4. VIOXX [Suspect]
     Route: 048
     Dates: start: 20000101, end: 20040101
  5. DURACT [Concomitant]
     Route: 065

REACTIONS (2)
  - CEREBROVASCULAR ACCIDENT [None]
  - ROTATOR CUFF SYNDROME [None]
